FAERS Safety Report 6889671-8 (Version None)
Quarter: 2010Q3

REPORT INFORMATION
  Report Type: 
  Country: None (occurrence: None)
  Receive Date: 20100730
  Receipt Date: 20080415
  Transmission Date: 20110219
  Serious: No
  Sender: FDA-Public Use
  Company Number: US-PFIZER INC-2008033379

PATIENT
  Sex: Female
  Weight: 60 kg

DRUGS (2)
  1. LIPITOR [Suspect]
     Indication: BLOOD CHOLESTEROL INCREASED
     Route: 048
     Dates: start: 20051230, end: 20060806
  2. GLUCOSAMINE [Concomitant]
     Indication: ARTHRITIS

REACTIONS (3)
  - JOINT SWELLING [None]
  - LIMB DISCOMFORT [None]
  - MUSCLE SPASMS [None]
